FAERS Safety Report 8031424-1 (Version None)
Quarter: 2012Q1

REPORT INFORMATION
  Report Type: 
  Country: None (occurrence: None)
  Receive Date: 20120109
  Receipt Date: 20111122
  Transmission Date: 20120608
  Serious: Yes (Other)
  Sender: FDA-Public Use
  Company Number: US-BRISTOL-MYERS SQUIBB COMPANY-16205346

PATIENT

DRUGS (1)
  1. NULOJIX [Suspect]

REACTIONS (1)
  - BK VIRUS INFECTION [None]
